FAERS Safety Report 5484948-5 (Version None)
Quarter: 2007Q4

REPORT INFORMATION
  Report Type: 
  Country: None (occurrence: None)
  Receive Date: 20071011
  Receipt Date: 20071003
  Transmission Date: 20080405
  Serious: Yes (Death, Hospitalization, Other)
  Sender: FDA-Public Use
  Company Number: 1-14889926/MED-07097

PATIENT
  Age: 84 Year
  Sex: Female
  Weight: 58.9676 kg

DRUGS (7)
  1. SPIRONOLACTONE [Suspect]
     Indication: CARDIAC FAILURE CONGESTIVE
     Dosage: 25 MG DAILY, ORAL
     Route: 048
     Dates: start: 20060801, end: 20061101
  2. METOPROLOL TARTRATE [Suspect]
     Dosage: 50MG TO 25MG DAILY, ORAL
     Route: 048
     Dates: start: 20060601, end: 20060901
  3. LASIX [Suspect]
     Dosage: 80MG DAILY, ORAL
     Route: 048
     Dates: start: 20010101
  4. COREG [Suspect]
     Dates: start: 20040601, end: 20060601
  5. MAVIK [Suspect]
     Dates: start: 20040601, end: 20060601
  6. ENALAPRIL MALEATE [Suspect]
     Dosage: 2.5MG DAILY, ORAL
     Route: 048
     Dates: start: 20060601
  7. K-DUR 20 [Suspect]
     Dates: start: 20010101, end: 20060801

REACTIONS (4)
  - BLOOD POTASSIUM DECREASED [None]
  - BLOOD PRESSURE DECREASED [None]
  - MINERAL DEFICIENCY [None]
  - OEDEMA PERIPHERAL [None]
